FAERS Safety Report 7358629-7 (Version None)
Quarter: 2011Q1

REPORT INFORMATION
  Report Type: 
  Country: None (occurrence: None)
  Receive Date: 20110317
  Receipt Date: 20110308
  Transmission Date: 20110831
  Serious: Yes (Hospitalization)
  Sender: FDA-Public Use
  Company Number: AT-JNJFOC-20110303196

PATIENT
  Age: 70 Year
  Sex: Female

DRUGS (2)
  1. CAELYX [Suspect]
     Route: 042
  2. CAELYX [Suspect]
     Indication: BREAST CANCER
     Route: 042

REACTIONS (3)
  - INCORRECT DRUG ADMINISTRATION DURATION [None]
  - MICROANGIOPATHY [None]
  - PALMAR-PLANTAR ERYTHRODYSAESTHESIA SYNDROME [None]
